FAERS Safety Report 7500856-X (Version None)
Quarter: 2011Q2

REPORT INFORMATION
  Report Type: 
  Country: None (occurrence: None)
  Receive Date: 20110524
  Receipt Date: 20110517
  Transmission Date: 20111010
  Serious: Yes (Other)
  Sender: FDA-Public Use
  Company Number: A0927608A

PATIENT
  Age: 66 Year
  Sex: Female

DRUGS (13)
  1. LISINOPRIL [Concomitant]
  2. PROTONIX [Concomitant]
  3. GLUCOPHAGE [Concomitant]
  4. SINGULAIR [Concomitant]
  5. SPIRIVA [Concomitant]
  6. CARVEDILOL [Suspect]
     Indication: HYPERTENSION
     Dosage: 6.25MG TWICE PER DAY
     Route: 048
     Dates: start: 20110201
  7. ALLEGRA [Concomitant]
  8. SIMVASTATIN [Concomitant]
  9. METOPROLOL [Concomitant]
  10. ADVAIR DISKUS 100/50 [Suspect]
     Indication: CHRONIC OBSTRUCTIVE PULMONARY DISEASE
     Dosage: 1PUFF TWICE PER DAY
     Route: 055
  11. ALPRAZOLAM [Concomitant]
  12. COREG [Suspect]
     Indication: HYPERTENSION
     Dosage: 12.5MG TWICE PER DAY
     Route: 048
     Dates: start: 20110101
  13. SYNTHROID [Concomitant]

REACTIONS (9)
  - EYE HAEMORRHAGE [None]
  - BLOOD PRESSURE FLUCTUATION [None]
  - SINUSITIS [None]
  - HYPOTENSION [None]
  - PAIN [None]
  - RESPIRATORY TRACT IRRITATION [None]
  - MALAISE [None]
  - HYPERTENSION [None]
  - BLOOD GLUCOSE INCREASED [None]
